FAERS Safety Report 5532316-X (Version None)
Quarter: 2007Q4

REPORT INFORMATION
  Report Type: 
  Country: None (occurrence: None)
  Receive Date: 20071129
  Receipt Date: 20071116
  Transmission Date: 20080405
  Serious: Yes (Other)
  Sender: FDA-Public Use
  Company Number: 2007335646

PATIENT
  Sex: Female

DRUGS (2)
  1. NEOSPORIN [Suspect]
     Indication: PAIN IN EXTREMITY
     Dosage: ENOUGH TO COVER 1 1/2 ^L^ SHAPE 2-3 TIME, TOPICAL
     Route: 061
     Dates: start: 20071024, end: 20071026
  2. METFORMIN HCL [Concomitant]

REACTIONS (5)
  - CONDITION AGGRAVATED [None]
  - DRUG INEFFECTIVE [None]
  - EXPIRED DRUG ADMINISTERED [None]
  - PAIN [None]
  - STAPHYLOCOCCAL SKIN INFECTION [None]
